FAERS Safety Report 11870400 (Version 1)
Quarter: 2015Q4

REPORT INFORMATION
  Report Type: Spontaneous
  Country: US (occurrence: None)
  Receive Date: 20151223
  Receipt Date: 20151223
  Transmission Date: 20160305
  Serious: Yes (Other)
  Sender: FDA-Public Use
  Company Number: None

PATIENT
  Age: 35 Year
  Sex: Male
  Weight: 110 kg

DRUGS (1)
  1. PHENYTOIN SODIUM 250 MG/5 ML WEST-WARD [Suspect]
     Active Substance: PHENYTOIN SODIUM
     Indication: SEIZURE
     Dosage: 250 MG; 4 VIALS ONCE INTRAVENOUS
     Route: 042
     Dates: start: 20151222, end: 20151222

REACTIONS (1)
  - Chest pain [None]

NARRATIVE: CASE EVENT DATE: 20151222
